FAERS Safety Report 19071606 (Version 1)
Quarter: 2021Q1

REPORT INFORMATION
  Report Type: Report from Study
  Country: US (occurrence: US)
  Receive Date: 20210330
  Receipt Date: 20210330
  Transmission Date: 20210420
  Serious: Yes (Other)
  Sender: FDA-Public Use
  Company Number: US-B.I. PHARMACEUTICALS,INC./RIDGEFIELD-2021-BI-085403

PATIENT
  Age: 52 Year
  Sex: Female

DRUGS (3)
  1. OFEV [Suspect]
     Active Substance: NINTEDANIB
     Indication: INTERSTITIAL LUNG DISEASE
     Route: 048
     Dates: start: 202103, end: 202103
  2. COVID?19 VACCINE [Concomitant]
     Indication: PRODUCT USED FOR UNKNOWN INDICATION
     Dosage: 1ST INJECTION
     Route: 065
     Dates: start: 20210301, end: 20210301
  3. OFEV [Suspect]
     Active Substance: NINTEDANIB
     Indication: IDIOPATHIC PULMONARY FIBROSIS
     Dosage: 150MG PO BID
     Route: 048
     Dates: start: 20210219, end: 20210302

REACTIONS (13)
  - Abdominal pain upper [Not Recovered/Not Resolved]
  - Feeding disorder [Unknown]
  - Insomnia [Unknown]
  - Systemic lupus erythematosus [Not Recovered/Not Resolved]
  - Diarrhoea [Unknown]
  - Limb discomfort [Recovered/Resolved]
  - Chest pain [Unknown]
  - Decreased appetite [Recovered/Resolved]
  - Vomiting [Recovered/Resolved]
  - Decreased appetite [Unknown]
  - Restlessness [Unknown]
  - Sputum increased [Unknown]
  - Peripheral swelling [Recovered/Resolved]

NARRATIVE: CASE EVENT DATE: 202102
